FAERS Safety Report 15567486 (Version 3)
Quarter: 2020Q1

REPORT INFORMATION
  Report Type: Spontaneous
  Country: JP (occurrence: JP)
  Receive Date: 20181030
  Receipt Date: 20200326
  Transmission Date: 20200409
  Serious: Yes (Death, Hospitalization, Other)
  Sender: FDA-Public Use
  Company Number: JP-ASTRAZENECA-2018SE79219

PATIENT
  Age: 26847 Day
  Sex: Female
  Weight: 31 kg

DRUGS (12)
  1. CRESTOR [Concomitant]
     Active Substance: ROSUVASTATIN CALCIUM
     Indication: DYSLIPIDAEMIA
     Route: 048
  2. CALCIUM LACTATE HYDRATE [Concomitant]
     Active Substance: CALCIUM LACTATE
     Indication: HYPOKALAEMIA
     Route: 048
     Dates: start: 20180615
  3. METOCLOPRAMIDE. [Concomitant]
     Active Substance: METOCLOPRAMIDE
     Indication: NAUSEA
     Route: 048
  4. IRESSA [Concomitant]
     Active Substance: GEFITINIB
     Indication: NON-SMALL CELL LUNG CANCER
     Route: 048
     Dates: start: 20180618
  5. BEVACIZUMAB. [Concomitant]
     Active Substance: BEVACIZUMAB
     Indication: NON-SMALL CELL LUNG CANCER
     Route: 065
     Dates: start: 20180719
  6. TAGRISSO [Suspect]
     Active Substance: OSIMERTINIB
     Indication: NON-SMALL CELL LUNG CANCER
     Route: 048
     Dates: start: 20180606, end: 20180616
  7. TAGRISSO [Suspect]
     Active Substance: OSIMERTINIB
     Indication: NON-SMALL CELL LUNG CANCER
     Route: 048
     Dates: start: 20181016, end: 20190721
  8. IRESSA [Concomitant]
     Active Substance: GEFITINIB
     Indication: NON-SMALL CELL LUNG CANCER
     Route: 048
  9. PEMETREXED SODIUM HYDRATE [Concomitant]
     Active Substance: PEMETREXED
     Indication: NON-SMALL CELL LUNG CANCER
     Dosage: 640.0MG UNKNOWN
     Route: 065
     Dates: start: 20180719
  10. MIYA-BM [Concomitant]
     Active Substance: CLOSTRIDIUM BUTYRICUM SPORES STRAIN M-55
     Indication: PROPHYLAXIS
     Route: 048
  11. DENOTAS [Concomitant]
     Active Substance: CALCIUM CARBONATE\CHOLECALCIFEROL\MAGNESIUM CARBONATE
     Indication: HYPOKALAEMIA
     Route: 048
  12. RANMARK [Concomitant]
     Active Substance: DENOSUMAB
     Dosage: DOSE UNKNOWN
     Route: 065

REACTIONS (15)
  - Urticaria [Fatal]
  - Hyperkalaemia [Unknown]
  - Feeding disorder [Unknown]
  - Malignant pleural effusion [Fatal]
  - Lymphangiosis carcinomatosa [Fatal]
  - Diarrhoea [Recovered/Resolved]
  - Vomiting [Fatal]
  - Hypoxia [Fatal]
  - Dehydration [Fatal]
  - Hyponatraemia [Unknown]
  - Pleural effusion [Unknown]
  - Dyspnoea [Unknown]
  - Nausea [Fatal]
  - Pyrexia [Fatal]
  - Lung opacity [Unknown]

NARRATIVE: CASE EVENT DATE: 20180611
